FAERS Safety Report 5591223-7 (Version None)
Quarter: 2008Q1

REPORT INFORMATION
  Report Type: 
  Country: None (occurrence: None)
  Receive Date: 20080115
  Receipt Date: 20070605
  Transmission Date: 20080703
  Serious: No
  Sender: FDA-Public Use
  Company Number: US-ABBOTT-07P-163-0371188-00

PATIENT
  Sex: Male
  Weight: 120 kg

DRUGS (2)
  1. HYTRIN [Suspect]
     Indication: HYPERTENSION
     Route: 048
     Dates: start: 20070301, end: 20070501
  2. PAROXETINE HYDROCHLORIDE [Concomitant]
     Indication: MIGRAINE
     Route: 048

REACTIONS (2)
  - DYSPNOEA [None]
  - SNORING [None]
